FAERS Safety Report 7642605-0 (Version None)
Quarter: 2011Q3

REPORT INFORMATION
  Report Type: 
  Country: None (occurrence: None)
  Receive Date: 20110728
  Receipt Date: 20110721
  Transmission Date: 20111222
  Serious: Yes (Other)
  Sender: FDA-Public Use
  Company Number: JP-PFIZER INC-2011159047

PATIENT
  Age: 40 Year
  Sex: Male

DRUGS (1)
  1. ZITHROMAX [Suspect]
     Indication: NASOPHARYNGITIS
     Dosage: 500 MG, 1X/DAY
     Route: 048
     Dates: start: 20110713, end: 20110713

REACTIONS (3)
  - COLD SWEAT [None]
  - PYREXIA [None]
  - PNEUMONIA [None]
